FAERS Safety Report 22176862 (Version 1)
Quarter: 2023Q2

REPORT INFORMATION
  Report Type: Spontaneous
  Country: US (occurrence: US)
  Receive Date: 20230405
  Receipt Date: 20230405
  Transmission Date: 20230721
  Serious: No
  Sender: FDA-Public Use
  Company Number: US-BAYER-2023A043223

PATIENT

DRUGS (2)
  1. ALEVE [Suspect]
     Active Substance: NAPROXEN SODIUM
     Indication: Back pain
     Dosage: ONE DOSE
  2. IBUPROFEN [Concomitant]
     Active Substance: IBUPROFEN
     Indication: Back pain

REACTIONS (1)
  - Abdominal pain upper [Unknown]
